FAERS Safety Report 20338016 (Version 2)
Quarter: 2022Q2

REPORT INFORMATION
  Report Type: Other
  Country: US (occurrence: None)
  Receive Date: 20220115
  Receipt Date: 20220621
  Transmission Date: 20220720
  Serious: Yes (Hospitalization, Other)
  Sender: FDA-Public Use
  Company Number: US-ROCHE-2998243

PATIENT
  Sex: Female
  Weight: 73.548 kg

DRUGS (38)
  1. ACTEMRA [Suspect]
     Active Substance: TOCILIZUMAB
     Indication: Rheumatoid arthritis
     Route: 058
     Dates: start: 20180128
  2. ACTEMRA [Suspect]
     Active Substance: TOCILIZUMAB
     Route: 058
     Dates: start: 20181002
  3. ACTEMRA [Suspect]
     Active Substance: TOCILIZUMAB
     Route: 058
  4. HYDROCODONE [Concomitant]
     Active Substance: HYDROCODONE
     Indication: Pain
     Dosage: ONGOING: YES
     Route: 048
     Dates: start: 2021
  5. VALACYCLOVIR [Concomitant]
     Active Substance: VALACYCLOVIR HYDROCHLORIDE
     Indication: Oral herpes
     Route: 048
     Dates: start: 2019
  6. VALACYCLOVIR [Concomitant]
     Active Substance: VALACYCLOVIR HYDROCHLORIDE
     Route: 048
  7. METHOTREXATE [Concomitant]
     Active Substance: METHOTREXATE
     Indication: Arthritis
     Route: 058
     Dates: start: 1989
  8. METOPROLOL SUCCINATE [Concomitant]
     Active Substance: METOPROLOL SUCCINATE
     Indication: Hypertension
     Route: 048
  9. AMLODIPINE [Concomitant]
     Active Substance: AMLODIPINE BESYLATE
     Indication: Hypertension
     Route: 048
  10. FUROSEMIDE [Concomitant]
     Active Substance: FUROSEMIDE
     Indication: Swelling
     Dosage: BUT TAKES 40MG ON TUESDAY + THURSDAYS
     Route: 048
  11. OMEPRAZOLE [Concomitant]
     Active Substance: OMEPRAZOLE
     Indication: Gastrooesophageal reflux disease
     Route: 048
  12. OMEPRAZOLE [Concomitant]
     Active Substance: OMEPRAZOLE
     Indication: Impaired gastric emptying
  13. OMEPRAZOLE [Concomitant]
     Active Substance: OMEPRAZOLE
     Indication: Hiatus hernia
  14. SYNTHROID [Concomitant]
     Active Substance: LEVOTHYROXINE SODIUM
     Indication: Hypothyroidism
     Route: 048
  15. GLYCOPYRROLATE [Concomitant]
     Active Substance: GLYCOPYRROLATE
     Indication: Hyperhidrosis
     Route: 048
     Dates: start: 2005
  16. PREDNISONE [Concomitant]
     Active Substance: PREDNISONE
     Indication: Arthritis
     Route: 048
  17. FOLIC ACID [Concomitant]
     Active Substance: FOLIC ACID
     Route: 048
  18. LYRICA [Concomitant]
     Active Substance: PREGABALIN
     Indication: Fibromyalgia
     Route: 048
  19. SAVELLA [Concomitant]
     Active Substance: MILNACIPRAN HYDROCHLORIDE
     Indication: Fibromyalgia
     Route: 048
  20. PROLIA [Concomitant]
     Active Substance: DENOSUMAB
     Indication: Arthritis
     Route: 058
  21. TIZANIDINE [Concomitant]
     Active Substance: TIZANIDINE
     Indication: Muscle relaxant therapy
     Route: 048
  22. LIDOCAINE [Concomitant]
     Active Substance: LIDOCAINE
     Indication: Arthritis
     Route: 062
  23. OXICONAZOLE [Concomitant]
     Active Substance: OXICONAZOLE
     Indication: Rash
     Route: 062
     Dates: start: 2017
  24. ROSUVASTATIN CALCIUM [Concomitant]
     Active Substance: ROSUVASTATIN CALCIUM
  25. CALCIUM [Concomitant]
     Active Substance: CALCIUM
  26. LEVOTHYROXINE SODIUM [Concomitant]
     Active Substance: LEVOTHYROXINE SODIUM
  27. PREGABALIN [Concomitant]
     Active Substance: PREGABALIN
  28. ASPIRIN [Concomitant]
     Active Substance: ASPIRIN
  29. VALTREX [Concomitant]
     Active Substance: VALACYCLOVIR HYDROCHLORIDE
  30. DIETARY SUPPLEMENT [Concomitant]
     Active Substance: DIETARY SUPPLEMENT
  31. ALEVE [Concomitant]
     Active Substance: NAPROXEN SODIUM
  32. METAMUCIL [Concomitant]
     Active Substance: PLANTAGO SEED
  33. BIOTIN [Concomitant]
     Active Substance: BIOTIN
  34. XIIDRA [Concomitant]
     Active Substance: LIFITEGRAST
  35. FLUCONAZOLE [Concomitant]
     Active Substance: FLUCONAZOLE
  36. TERBINAFINE [Concomitant]
     Active Substance: TERBINAFINE
  37. UREA [Concomitant]
     Active Substance: UREA
  38. ACETAMINOPHEN\HYDROCODONE [Concomitant]
     Active Substance: ACETAMINOPHEN\HYDROCODONE

REACTIONS (32)
  - Infection [Recovered/Resolved]
  - Pain [Not Recovered/Not Resolved]
  - Upper limb fracture [Recovered/Resolved]
  - Spondylolisthesis [Recovered/Resolved with Sequelae]
  - Nerve injury [Not Recovered/Not Resolved]
  - Calcinosis [Not Recovered/Not Resolved]
  - Tendon rupture [Recovered/Resolved]
  - Carpal tunnel syndrome [Not Recovered/Not Resolved]
  - Neuropathy peripheral [Not Recovered/Not Resolved]
  - Body height decreased [Not Recovered/Not Resolved]
  - Weight decreased [Not Recovered/Not Resolved]
  - Rib fracture [Recovered/Resolved]
  - Thoracic vertebral fracture [Recovered/Resolved]
  - Contusion [Recovered/Resolved]
  - Needle issue [Unknown]
  - Tendon injury [Recovered/Resolved]
  - Spinal fracture [Unknown]
  - Spinal fracture [Unknown]
  - Back disorder [Unknown]
  - Bone disorder [Recovered/Resolved]
  - Spondylitis [Unknown]
  - Herpes simplex [Unknown]
  - Fall [Unknown]
  - Stress fracture [Not Recovered/Not Resolved]
  - Spinal compression fracture [Unknown]
  - Malaise [Unknown]
  - Pain [Unknown]
  - Corneal dystrophy [Not Recovered/Not Resolved]
  - Muscular weakness [Not Recovered/Not Resolved]
  - Arthritis infective [Recovered/Resolved]
  - Bone density decreased [Not Recovered/Not Resolved]
  - Hypertension [Unknown]

NARRATIVE: CASE EVENT DATE: 20190101
